FAERS Safety Report 21081492 (Version 1)
Quarter: 2022Q3

REPORT INFORMATION
  Report Type: Spontaneous
  Country: US (occurrence: None)
  Receive Date: 20220713
  Receipt Date: 20220713
  Transmission Date: 20221026
  Serious: Yes (Hospitalization)
  Sender: FDA-Public Use
  Company Number: None

PATIENT
  Age: 27 Year
  Sex: Male
  Weight: 99.9 kg

DRUGS (1)
  1. FINASTERIDE [Suspect]
     Active Substance: FINASTERIDE
     Indication: Alopecia
     Dosage: OTHER QUANTITY : 3 SPRAY(S);?
     Route: 061

REACTIONS (8)
  - Anhedonia [None]
  - Insomnia [None]
  - Amnesia [None]
  - Feeling abnormal [None]
  - Erectile dysfunction [None]
  - Genital hypoaesthesia [None]
  - Anxiety [None]
  - Suicidal ideation [None]

NARRATIVE: CASE EVENT DATE: 20220508
